FAERS Safety Report 7918794 (Version 7)
Quarter: 2013Q4

REPORT INFORMATION
  Report Type: Report from Study
  Country: US (occurrence: US)
  Receive Date: 20110428
  Receipt Date: 20131107
  Transmission Date: 20140711
  Serious: Yes (Hospitalization)
  Sender: FDA-Public Use
  Company Number: US-BRISTOL-MYERS SQUIBB COMPANY-15698103

PATIENT
  Age: 65 Year
  Sex: Male

DRUGS (6)
  1. IPILIMUMAB [Suspect]
     Indication: MALIGNANT MELANOMA
     Route: 042
     Dates: start: 20110214, end: 20110328
  2. MIRALAX [Concomitant]
     Dates: start: 20110304
  3. VICODIN [Concomitant]
     Dates: start: 20110304
  4. HYDROCORTISONE [Concomitant]
     Dates: start: 20110120
  5. MULTIVITAMINS [Concomitant]
  6. VITAMIN C [Concomitant]

REACTIONS (7)
  - Intestinal perforation [Recovered/Resolved]
  - Intestinal obstruction [Recovered/Resolved]
  - Colitis [Recovered/Resolved]
  - Septic shock [Recovered/Resolved]
  - Hypotension [Recovered/Resolved]
  - Atrial flutter [Recovered/Resolved with Sequelae]
  - Anaemia [Recovered/Resolved with Sequelae]
